FAERS Safety Report 5342787-X (Version None)
Quarter: 2007Q2

REPORT INFORMATION
  Report Type: 
  Country: None (occurrence: None)
  Receive Date: 20070601
  Receipt Date: 20070522
  Transmission Date: 20071010
  Serious: Yes (Hospitalization, Other)
  Sender: FDA-Public Use
  Company Number: US-GENENTECH-241961

PATIENT
  Sex: Female
  Weight: 70 kg

DRUGS (4)
  1. AVASTIN [Suspect]
     Indication: BREAST CANCER METASTATIC
     Dosage: 10 MG/KG, QOW
     Route: 042
     Dates: start: 20070108
  2. TAXOL [Concomitant]
     Indication: BREAST CANCER METASTATIC
     Dosage: UNK, DAYS1,8,15
  3. FILGRASTIM [Concomitant]
     Indication: DRUG USE FOR UNKNOWN INDICATION
     Dosage: 300 A?G, UNK
  4. ARANESP [Concomitant]
     Indication: DRUG USE FOR UNKNOWN INDICATION
     Dosage: 200 A?G, Q2W

REACTIONS (2)
  - CAPILLARY LEAK SYNDROME [None]
  - GENERALISED OEDEMA [None]
